FAERS Safety Report 9655884 (Version 1)
Quarter: 2013Q4

REPORT INFORMATION
  Report Type: Spontaneous
  Country: DE (occurrence: DE)
  Receive Date: 20131030
  Receipt Date: 20131030
  Transmission Date: 20140711
  Serious: Yes (Other)
  Sender: FDA-Public Use
  Company Number: DE-ROCHE-1295548

PATIENT
  Sex: Female

DRUGS (1)
  1. ZELBORAF [Suspect]
     Indication: PRODUCT USED FOR UNKNOWN INDICATION
     Route: 065
     Dates: start: 201304

REACTIONS (5)
  - Arthralgia [Unknown]
  - Rash [Unknown]
  - Fatigue [Unknown]
  - Nausea [Unknown]
  - Blood creatinine abnormal [Unknown]
